FAERS Safety Report 6049818-2 (Version None)
Quarter: 2009Q1

REPORT INFORMATION
  Report Type: 
  Country: None (occurrence: None)
  Receive Date: 20090121
  Receipt Date: 20080313
  Transmission Date: 20090719
  Serious: Yes (Other)
  Sender: FDA-Public Use
  Company Number: HQWYE734504AUG03

PATIENT
  Age: 60 Year
  Sex: Female

DRUGS (3)
  1. PREMPRO [Suspect]
     Dosage: EVERY DAY FOR SEVERAL YEARS, ORAL
     Route: 048
  2. PREMARIN [Suspect]
  3. PROVERA [Suspect]

REACTIONS (2)
  - BREAST CANCER FEMALE [None]
  - OVARIAN CANCER [None]
